FAERS Safety Report 15134835 (Version 1)
Quarter: 2018Q3

REPORT INFORMATION
  Report Type: Spontaneous
  Country: US (occurrence: US)
  Receive Date: 20180615
  Receipt Date: 20180615
  Transmission Date: 20181010
  Serious: No
  Sender: FDA-Public Use
  Company Number: None

PATIENT
  Sex: Female
  Weight: 144.24 kg

DRUGS (6)
  1. MIRENA [Suspect]
     Active Substance: LEVONORGESTREL
     Indication: UTERINE CANCER
     Dates: start: 20170217
  2. VITAMIN C [Concomitant]
     Active Substance: ASCORBIC ACID
  3. B VITAMINS [Concomitant]
     Active Substance: CYANOCOBALAMIN\DEXPANTHENOL\NIACINAMIDE\PYRIDOXINE HYDROCHLORIDE\RIBOFLAVIN 5^-PHOSPHATE SODIUM\THIAMINE HYDROCHLORIDE\VITAMIN B COMPLEX
  4. VITAMIN D [Concomitant]
     Active Substance: CHOLECALCIFEROL
  5. MIRENA [Suspect]
     Active Substance: LEVONORGESTREL
     Indication: HAEMORRHAGE
     Dates: start: 20170217
  6. MAGNESIUM [Concomitant]
     Active Substance: MAGNESIUM

REACTIONS (8)
  - Migraine [None]
  - Nausea [None]
  - Insomnia [None]
  - Asthenia [None]
  - Tremor [None]
  - Abdominal pain [None]
  - Blood pressure increased [None]
  - Pelvic pain [None]
